FAERS Safety Report 8882458 (Version 1)
Quarter: 2012Q4

REPORT INFORMATION
  Report Type: 
  Country: US (occurrence: US)
  Receive Date: 20121105
  Receipt Date: 20121105
  Transmission Date: 20130627
  Serious: Yes (Other)
  Sender: FDA-Public Use
  Company Number: US-ACCORD-015085

PATIENT
  Age: 54 Year
  Sex: Female
  Weight: 75.91 kg

DRUGS (1)
  1. CLONAZEPAM [Suspect]
     Indication: ANXIETY
     Dosage: Tapering dose
     Route: 048
     Dates: start: 20121016, end: 20121022

REACTIONS (7)
  - Swelling [Recovering/Resolving]
  - Chest pain [Recovering/Resolving]
  - Rash [Recovering/Resolving]
  - Abdominal pain upper [Recovering/Resolving]
  - Feeling hot [Recovered/Resolved]
  - Flushing [Recovered/Resolved]
  - Off label use [Unknown]
